FAERS Safety Report 15600555 (Version 2)
Quarter: 2018Q4

REPORT INFORMATION
  Report Type: Spontaneous
  Country: FR (occurrence: FR)
  Receive Date: 20181109
  Receipt Date: 20181114
  Transmission Date: 20190205
  Serious: Yes (Other)
  Sender: FDA-Public Use
  Company Number: FR-TEVA-2018-FR-973782

PATIENT
  Age: 73 Year
  Sex: Male

DRUGS (2)
  1. IBUPROFEN. [Suspect]
     Active Substance: IBUPROFEN
     Dosage: 400 MILLIGRAM DAILY;
     Route: 048
     Dates: start: 20180129
  2. UROREC [Concomitant]
     Active Substance: SILODOSIN
     Route: 065

REACTIONS (1)
  - Blood urine present [Unknown]

NARRATIVE: CASE EVENT DATE: 20180205
